FAERS Safety Report 6030120-X (Version None)
Quarter: 2009Q1

REPORT INFORMATION
  Report Type: 
  Country: None (occurrence: None)
  Receive Date: 20090107
  Receipt Date: 20081231
  Transmission Date: 20090719
  Serious: Yes (Hospitalization)
  Sender: FDA-Public Use
  Company Number: FR-MERCK-0901FRA00001

PATIENT
  Age: 48 Year
  Sex: Male

DRUGS (17)
  1. ISENTRESS [Suspect]
     Indication: HIV INFECTION
     Route: 048
     Dates: start: 20080124, end: 20080901
  2. ISENTRESS [Suspect]
     Route: 048
     Dates: start: 20081001
  3. RITONAVIR [Concomitant]
     Indication: HIV INFECTION
     Route: 048
     Dates: start: 20080124, end: 20080901
  4. RITONAVIR [Concomitant]
     Route: 048
     Dates: start: 20081001
  5. DARUNAVIR [Concomitant]
     Indication: HIV INFECTION
     Route: 065
     Dates: start: 20080124, end: 20080901
  6. DARUNAVIR [Concomitant]
     Route: 065
     Dates: start: 20081001
  7. LAMIVUDINE [Concomitant]
     Indication: HIV INFECTION
     Route: 065
     Dates: start: 20080124, end: 20080901
  8. LAMIVUDINE [Concomitant]
     Route: 065
     Dates: start: 20081001
  9. IRBESARTAN [Concomitant]
     Indication: HYPERTENSION
     Route: 048
  10. SPIRONOLACTONE [Concomitant]
     Indication: HYPERTENSION
     Route: 048
     Dates: end: 20081231
  11. FONDAPARINUX SODIUM [Concomitant]
     Route: 051
  12. LEVETIRACETAM [Concomitant]
     Route: 065
  13. PYRIDOSTIGMINE BROMIDE [Concomitant]
     Indication: MUSCULAR WEAKNESS
     Route: 048
  14. PREDNISONE [Concomitant]
     Indication: MUSCULAR WEAKNESS
     Route: 048
  15. ATOVAQUONE [Concomitant]
     Route: 065
  16. AMPHOTERICIN B AND CHOLESTEROL AND DISTEAROYLPHOSPHATIDYLGLYCEROL AND [Concomitant]
     Route: 065
  17. HYDROXYZINE HYDROCHLORIDE [Concomitant]
     Route: 048

REACTIONS (3)
  - HAEMATOMA [None]
  - HAEMORRHAGIC STROKE [None]
  - THROMBOCYTOPENIA [None]
